FAERS Safety Report 4760205-7 (Version None)
Quarter: 2005Q3

REPORT INFORMATION
  Report Type: 
  Country: None (occurrence: None)
  Receive Date: 20050902
  Receipt Date: 20050601
  Transmission Date: 20060218
  Serious: Yes (Death)
  Sender: FDA-Public Use
  Company Number: FR-JNJFOC-20050600344

PATIENT
  Sex: Male

DRUGS (1)
  1. DURAGESIC-100 [Suspect]
     Indication: CANCER PAIN
     Route: 062

REACTIONS (3)
  - APPLICATION SITE PAIN [None]
  - CAUSTIC INJURY [None]
  - MALIGNANT NEOPLASM PROGRESSION [None]
